FAERS Safety Report 6146411-8 (Version None)
Quarter: 2009Q2

REPORT INFORMATION
  Report Type: 
  Country: None (occurrence: None)
  Receive Date: 20090403
  Receipt Date: 20090403
  Transmission Date: 20091009
  Serious: Yes (Life-Threatening, Hospitalization)
  Sender: FDA-Public Use
  Company Number: None

PATIENT
  Sex: Female
  Weight: 45.8133 kg

DRUGS (1)
  1. RECLAST [Suspect]
     Indication: OSTEOPOROSIS
     Dosage: 5MG ONCE IV
     Route: 042
     Dates: start: 20090127

REACTIONS (9)
  - BLOOD CALCIUM DECREASED [None]
  - BLOOD MAGNESIUM DECREASED [None]
  - BLOOD PHOSPHORUS DECREASED [None]
  - BLOOD SODIUM DECREASED [None]
  - DYSKINESIA [None]
  - HAEMOGLOBIN DECREASED [None]
  - PYREXIA [None]
  - UNRESPONSIVE TO STIMULI [None]
  - VOMITING [None]
